FAERS Safety Report 15787390 (Version 2)
Quarter: 2019Q1

REPORT INFORMATION
  Report Type: Spontaneous
  Country: US (occurrence: US)
  Receive Date: 20190103
  Receipt Date: 20190123
  Transmission Date: 20190417
  Serious: No
  Sender: FDA-Public Use
  Company Number: US-B.I. PHARMACEUTICALS,INC./RIDGEFIELD-2019-BI-000133

PATIENT
  Age: 74 Year
  Sex: Male

DRUGS (12)
  1. ZETIA [Concomitant]
     Active Substance: EZETIMIBE
     Indication: CARDIAC DISORDER
     Dosage: ONE TABLET DAILY;  FORM STRENGTH: 10 MG; FORMULATION: TABLET
     Route: 048
  2. REPATHA [Concomitant]
     Active Substance: EVOLOCUMAB
     Indication: BLOOD CHOLESTEROL INCREASED
     Dosage: ONCE EVERY THREE WEEKS;  FORM STRENGTH: 140 MG; FORMULATION: SUBCUTANEOUS
     Route: 058
  3. OMEPRAZOLE. [Concomitant]
     Active Substance: OMEPRAZOLE
     Indication: COLITIS
     Dosage: ONE CAPSULE TWICE A DAY;  FORM STRENGTH: 20 MG; FORMULATION: CAPSULE
     Route: 048
  4. FINASTERIDE. [Concomitant]
     Active Substance: FINASTERIDE
     Indication: PROSTATIC DISORDER
     Dosage: ONE TABLET DAILY;  FORM STRENGTH: 5 MG; FORMULATION: TABLET
     Route: 048
  5. ATENOLOL. [Concomitant]
     Active Substance: ATENOLOL
     Indication: HEART RATE INCREASED
     Dosage: ONE TABLET DAILY;  FORM STRENGTH: 25 MG; FORMULATION: TABLET
     Route: 048
  6. BEVESPI INHALER [Concomitant]
     Indication: EMPHYSEMA
     Dosage: TWO PUFFS TWICE A DAY;
     Route: 055
  7. PLAVIX [Concomitant]
     Active Substance: CLOPIDOGREL BISULFATE
     Indication: ISCHAEMIC HEART DISEASE PROPHYLAXIS
     Dosage: ONE TABLET A DAY;  FORM STRENGTH: 75 MG; FORMULATION: TABLET
     Route: 048
  8. PRAVASTATIN. [Concomitant]
     Active Substance: PRAVASTATIN
     Indication: BLOOD CHOLESTEROL INCREASED
     Dosage: ONE TABLET DAILY;  FORM STRENGTH: 10 MG; FORMULATION: TABLET
     Route: 048
  9. MESALAMINE DR [Concomitant]
     Indication: COLITIS
     Dosage: THREE TABLETS ONCE A DAY;  FORMULATION: TABLET;
     Route: 048
  10. OFEV [Suspect]
     Active Substance: NINTEDANIB
     Indication: IDIOPATHIC PULMONARY FIBROSIS
     Dosage: FORM STRENGTH: 150 MG; ADMINISTRATION CORRECT? YES ?ACTION(S) TAKEN WITH PRODUCT: DOSE NOT CHANGED
     Route: 048
     Dates: start: 201802
  11. FLOMAX [Concomitant]
     Active Substance: TAMSULOSIN HYDROCHLORIDE
     Indication: PROSTATIC DISORDER
     Dosage: ONE CAPSULE DAILY;  FORMULATION: CAPSULE;
     Route: 048
  12. ASPIRIN. [Concomitant]
     Active Substance: ASPIRIN
     Indication: CARDIAC DISORDER
     Dosage: ONE TABLET DAILY;  FORM STRENGTH: 81 MG; FORMULATION: TABLET
     Route: 048

REACTIONS (2)
  - Oxygen saturation decreased [Not Recovered/Not Resolved]
  - Oxygen saturation abnormal [Not Recovered/Not Resolved]

NARRATIVE: CASE EVENT DATE: 20181228
